FAERS Safety Report 23359293 (Version 2)
Quarter: 2024Q1

REPORT INFORMATION
  Report Type: Report from Study
  Country: US (occurrence: US)
  Receive Date: 20240102
  Receipt Date: 20240227
  Transmission Date: 20240410
  Serious: Yes (Other)
  Sender: FDA-Public Use
  Company Number: US-JAZZ PHARMACEUTICALS-2023-US-023794

PATIENT
  Age: 43 Year
  Sex: Male
  Weight: 90 kg

DRUGS (32)
  1. EPIDIOLEX [Suspect]
     Active Substance: CANNABIDIOL
     Indication: Product used for unknown indication
     Dosage: 5 MILLIGRAM/KILOGRAM, QD
     Route: 048
     Dates: start: 20231215
  2. EPIDIOLEX [Suspect]
     Active Substance: CANNABIDIOL
     Dosage: 5.7 MILLIGRAM/KILOGRAM
     Route: 048
     Dates: start: 20231215
  3. EPIDIOLEX [Suspect]
     Active Substance: CANNABIDIOL
     Dosage: 11.4 MILLIGRAM/KILOGRAM, QD
     Route: 048
     Dates: start: 20231227
  4. VALIUM [Concomitant]
     Active Substance: DIAZEPAM
     Indication: Post-traumatic stress disorder
     Dosage: 30 MILLIGRAM, TID
     Route: 048
     Dates: start: 19860615, end: 2008
  5. VALIUM [Concomitant]
     Active Substance: DIAZEPAM
     Dosage: 20 MILLIGRAM, TID
     Route: 048
     Dates: start: 20080615
  6. VALIUM [Concomitant]
     Active Substance: DIAZEPAM
     Dosage: 5 MILLIGRAM, TID
     Route: 048
     Dates: start: 20231103
  7. EPIPEN [Concomitant]
     Active Substance: EPINEPHRINE
     Indication: Food allergy
     Dosage: 0.3 MILLILITER
     Route: 030
     Dates: start: 19860615
  8. EPIPEN [Concomitant]
     Active Substance: EPINEPHRINE
     Indication: Arthropod sting
     Dosage: 0.3 MILLILITER
     Route: 030
     Dates: start: 20230317
  9. ADDERALL [Concomitant]
     Active Substance: AMPHETAMINE ASPARTATE\AMPHETAMINE SULFATE\DEXTROAMPHETAMINE SACCHARATE\DEXTROAMPHETAMINE SULFATE
     Indication: Attention deficit hyperactivity disorder
     Dosage: 20 MILLIGRAM, QD
     Route: 048
  10. ADDERALL [Concomitant]
     Active Substance: AMPHETAMINE ASPARTATE\AMPHETAMINE SULFATE\DEXTROAMPHETAMINE SACCHARATE\DEXTROAMPHETAMINE SULFATE
     Dosage: 10 MILLIGRAM, QD
     Route: 048
     Dates: start: 20230705
  11. BUPROPION HYDROCHLORIDE [Concomitant]
     Active Substance: BUPROPION HYDROCHLORIDE
     Indication: Major depression
     Dosage: 100 MILLIGRAM, QD
     Route: 048
     Dates: start: 20080615
  12. BUPROPION HYDROCHLORIDE [Concomitant]
     Active Substance: BUPROPION HYDROCHLORIDE
     Dosage: 100 MILLIGRAM, QD
     Route: 048
     Dates: start: 20220428
  13. GABAPENTIN [Concomitant]
     Active Substance: GABAPENTIN
     Indication: Sleep apnoea syndrome
     Dosage: 300 MILLIGRAM, QD
     Route: 048
     Dates: start: 20180424
  14. GABAPENTIN [Concomitant]
     Active Substance: GABAPENTIN
     Indication: Neuropathy peripheral
     Dosage: 300 MILLIGRAM, BID
     Route: 048
     Dates: start: 20180615
  15. DICYCLOMINE HYDROCHLORIDE [Concomitant]
     Active Substance: DICYCLOMINE HYDROCHLORIDE
     Indication: Abdominal pain
     Dosage: 20 MILLIGRAM
     Route: 048
     Dates: start: 20210615
  16. DICYCLOMINE HYDROCHLORIDE [Concomitant]
     Active Substance: DICYCLOMINE HYDROCHLORIDE
     Dosage: 20 UNK
     Route: 048
     Dates: start: 20230918
  17. LOPERAMIDE HYDROCHLORIDE [Concomitant]
     Active Substance: LOPERAMIDE HYDROCHLORIDE
     Indication: Diarrhoea
     Dosage: 2.5 MILLILITER
     Route: 048
     Dates: start: 20210615
  18. LOPERAMIDE HYDROCHLORIDE [Concomitant]
     Active Substance: LOPERAMIDE HYDROCHLORIDE
     Dosage: 2.5 MILLILITER
     Route: 048
     Dates: start: 20230920
  19. CLONIDINE [Concomitant]
     Active Substance: CLONIDINE
     Indication: Hypertension
     Dosage: 0.2 MILLIGRAM, TID
     Route: 048
     Dates: start: 20230515
  20. CLONIDINE [Concomitant]
     Active Substance: CLONIDINE
     Indication: Attention deficit hyperactivity disorder
     Dosage: 0.2 MILLIGRAM, TID
     Route: 048
     Dates: start: 20231023
  21. FISH OIL [Concomitant]
     Active Substance: FISH OIL
     Indication: Medical diet
     Dosage: 1 GRAM, QD
     Route: 048
     Dates: start: 20010615
  22. LAMICTAL XR [Concomitant]
     Active Substance: LAMOTRIGINE
     Indication: Partial seizures
     Dosage: 200 MILLIGRAM, BID
     Route: 048
     Dates: start: 20170808
  23. AMBIEN [Concomitant]
     Active Substance: ZOLPIDEM TARTRATE
     Indication: Sleep disorder
     Dosage: 10 MILLIGRAM
     Route: 048
     Dates: start: 20180416
  24. KETOCONAZOLE [Concomitant]
     Active Substance: KETOCONAZOLE
     Indication: Dandruff
     Dosage: TOPICAL, 3 TIMES A WEEK
     Dates: start: 20211008
  25. LOXAPINE [Concomitant]
     Active Substance: LOXAPINE
     Indication: Bipolar disorder
     Dosage: 10 MILLIGRAM, QD
     Route: 048
     Dates: start: 20220514
  26. LOXAPINE [Concomitant]
     Active Substance: LOXAPINE
     Indication: Schizoaffective disorder
  27. ZONISAMIDE [Concomitant]
     Active Substance: ZONISAMIDE
     Indication: Partial seizures
     Dosage: 100 MILLIGRAM, Q4H
     Dates: start: 20220725
  28. ZOFRAN [Concomitant]
     Active Substance: ONDANSETRON HYDROCHLORIDE
     Indication: Nausea
     Dosage: 4 MILLIGRAM
     Route: 048
     Dates: start: 20230302
  29. TRULANCE [Concomitant]
     Active Substance: PLECANATIDE
     Indication: Irritable bowel syndrome
     Dosage: 3 MILLIGRAM, QD
     Route: 048
     Dates: start: 20230630
  30. PRAZOSIN [Concomitant]
     Active Substance: PRAZOSIN
     Indication: Post-traumatic stress disorder
     Dosage: 2 MILLIGRAM, QD
     Route: 048
     Dates: start: 20230712
  31. LOSARTAN [Concomitant]
     Active Substance: LOSARTAN
     Indication: Hypertension
     Dosage: 50 MILLIGRAM, QD
     Dates: start: 20230804
  32. AMITIZA [Concomitant]
     Active Substance: LUBIPROSTONE
     Indication: Irritable bowel syndrome
     Dosage: UNK, BID
     Route: 048
     Dates: start: 20230920

REACTIONS (1)
  - Hepatic enzyme abnormal [Recovered/Resolved]

NARRATIVE: CASE EVENT DATE: 20231121
